FAERS Safety Report 15375982 (Version 5)
Quarter: 2019Q1

REPORT INFORMATION
  Report Type: Spontaneous
  Country: US (occurrence: US)
  Receive Date: 20180912
  Receipt Date: 20190131
  Transmission Date: 20190417
  Serious: No
  Sender: FDA-Public Use
  Company Number: US-PFIZER INC-2018358085

PATIENT
  Age: 69 Year
  Sex: Female
  Weight: 45 kg

DRUGS (2)
  1. LYRICA [Suspect]
     Active Substance: PREGABALIN
     Indication: PAIN
  2. LYRICA [Suspect]
     Active Substance: PREGABALIN
     Indication: NEURALGIA
     Dosage: 150 MG, 3X/DAY
     Route: 048

REACTIONS (6)
  - Sleep disorder [Unknown]
  - Malaise [Unknown]
  - Drug effect incomplete [Unknown]
  - Poor quality product administered [Unknown]
  - Product storage error [Unknown]
  - Pain [Unknown]

NARRATIVE: CASE EVENT DATE: 20180831
